FAERS Safety Report 7908355-8 (Version None)
Quarter: 2011Q4

REPORT INFORMATION
  Report Type: 
  Country: None (occurrence: None)
  Receive Date: 20111110
  Receipt Date: 20111110
  Transmission Date: 20120403
  Serious: No
  Sender: FDA-Public Use
  Company Number: None

PATIENT

DRUGS (1)
  1. VITAMIN D [Suspect]

REACTIONS (2)
  - PRODUCT LABEL ISSUE [None]
  - INTERCEPTED MEDICATION ERROR [None]
